FAERS Safety Report 21254422 (Version 1)
Quarter: 2022Q3

REPORT INFORMATION
  Report Type: Spontaneous
  Country: US (occurrence: None)
  Receive Date: 20220824
  Receipt Date: 20220824
  Transmission Date: 20221026
  Serious: No
  Sender: FDA-Public Use
  Company Number: None

PATIENT
  Age: 68 Year
  Sex: Male
  Weight: 88.2 kg

DRUGS (17)
  1. BUDESONIDE\FORMOTEROL [Suspect]
     Active Substance: BUDESONIDE\FORMOTEROL
     Indication: Chronic obstructive pulmonary disease
     Dosage: OTHER QUANTITY : 2 PUFF(S);?FREQUENCY : TWICE A DAY;?
     Route: 055
     Dates: start: 20220811, end: 20220824
  2. BREZTRI [Suspect]
     Active Substance: BUDESONIDE\FORMOTEROL\GLYCOPYRROLATE
     Indication: Chronic obstructive pulmonary disease
     Dosage: OTHER QUANTITY : 2 PUFF(S);?FREQUENCY : TWICE A DAY;?
     Route: 055
     Dates: start: 20220710, end: 20220810
  3. TAMSULOSIN [Concomitant]
     Active Substance: TAMSULOSIN
  4. ISOSORBIDE MONONITRATE [Concomitant]
  5. METFORMIN [Concomitant]
     Active Substance: METFORMIN HYDROCHLORIDE
  6. LEVOTHYROXINE [Concomitant]
     Active Substance: LEVOTHYROXINE
  7. ATORVASTATIN [Concomitant]
     Active Substance: ATORVASTATIN
  8. AMLODIPINE [Concomitant]
  9. TRIAMCINOLONE [Concomitant]
     Active Substance: TRIAMCINOLONE
  10. FLUOCINONIDE [Concomitant]
  11. PRIMECROLIMUS [Concomitant]
  12. KETOCONAZOLE [Concomitant]
     Active Substance: KETOCONAZOLE
  13. NEOMYCIN/POLYMIXIN B/DEXAMETHASONE EYE [Concomitant]
  14. VITAMIN D3 [Concomitant]
     Active Substance: CHOLECALCIFEROL
  15. MINERALS\VITAMINS [Concomitant]
     Active Substance: MINERALS\VITAMINS
  16. AMINO ACID SUPPLEMENT [Concomitant]
  17. ASPIRIN [Concomitant]
     Active Substance: ASPIRIN

REACTIONS (5)
  - Dyspnoea [None]
  - Device ineffective [None]
  - Oxygen saturation decreased [None]
  - Product storage error [None]
  - Manufacturing product shipping issue [None]

NARRATIVE: CASE EVENT DATE: 20220811
